FAERS Safety Report 16676273 (Version 1)
Quarter: 2019Q3

REPORT INFORMATION
  Report Type: Spontaneous
  Country: CA (occurrence: CA)
  Receive Date: 20190807
  Receipt Date: 20190807
  Transmission Date: 20191004
  Serious: Yes (Hospitalization)
  Sender: FDA-Public Use
  Company Number: CA-ROCHE-2371044

PATIENT
  Age: 73 Year
  Sex: Female
  Weight: 80 kg

DRUGS (8)
  1. LEVOCARB [Concomitant]
     Active Substance: CARBIDOPA\LEVODOPA
  2. VALIUM [Suspect]
     Active Substance: DIAZEPAM
     Indication: PRODUCT USED FOR UNKNOWN INDICATION
     Route: 065
  3. FLOVENT [Concomitant]
     Active Substance: FLUTICASONE PROPIONATE
  4. NITROGLYCERIN. [Concomitant]
     Active Substance: NITROGLYCERIN
  5. XARELTO [Concomitant]
     Active Substance: RIVAROXABAN
  6. VENTOLIN [Concomitant]
     Active Substance: ALBUTEROL SULFATE
  7. SOLIRIS [Suspect]
     Active Substance: ECULIZUMAB
     Indication: PAROXYSMAL NOCTURNAL HAEMOGLOBINURIA
     Dosage: 10 MG/ML
     Route: 042
     Dates: start: 20170413, end: 20170511
  8. ZOPICLONE [Concomitant]
     Active Substance: ZOPICLONE

REACTIONS (5)
  - Asthenia [Not Recovered/Not Resolved]
  - Haemoptysis [Unknown]
  - Dizziness [Not Recovered/Not Resolved]
  - Hypotension [Not Recovered/Not Resolved]
  - Drug hypersensitivity [Unknown]

NARRATIVE: CASE EVENT DATE: 2018
